FAERS Safety Report 7512734-0 (Version None)
Quarter: 2011Q2

REPORT INFORMATION
  Report Type: 
  Country: None (occurrence: None)
  Receive Date: 20110531
  Receipt Date: 20110513
  Transmission Date: 20111010
  Serious: Yes (Hospitalization)
  Sender: FDA-Public Use
  Company Number: A0781134A

PATIENT
  Age: 60 Year
  Sex: Male
  Weight: 89.1 kg

DRUGS (8)
  1. GLIPIZIDE [Concomitant]
  2. METFORMIN HCL [Concomitant]
  3. DETROL [Concomitant]
  4. ZOLOFT [Concomitant]
  5. AVANDIA [Suspect]
     Indication: DIABETES MELLITUS
     Dosage: 4MG PER DAY
     Route: 048
     Dates: start: 20011219, end: 20070801
  6. PRAVACHOL [Concomitant]
  7. LIPITOR [Concomitant]
  8. TOPROL-XL [Concomitant]

REACTIONS (4)
  - MYOCARDIAL INFARCTION [None]
  - MYOCARDIAL ISCHAEMIA [None]
  - ANGINA PECTORIS [None]
  - CORONARY ARTERY DISEASE [None]
